FAERS Safety Report 15384633 (Version 1)
Quarter: 2018Q3

REPORT INFORMATION
  Report Type: Spontaneous
  Country: US (occurrence: US)
  Receive Date: 20180907
  Receipt Date: 20180907
  Transmission Date: 20181010
  Serious: Yes (Hospitalization)
  Sender: FDA-Public Use
  Company Number: None

PATIENT
  Age: 80 Year
  Sex: Female
  Weight: 56.2 kg

DRUGS (8)
  1. NAPROSYN [Concomitant]
     Active Substance: NAPROXEN
  2. FOLIC ACID. [Concomitant]
     Active Substance: FOLIC ACID
  3. INFLECTRA [Suspect]
     Active Substance: INFLIXIMAB-DYYB
     Indication: RHEUMATOID ARTHRITIS
     Dosage: 200 MG (2 VIALS) ONCE INTRAVENOUS
     Route: 042
     Dates: start: 201806
  4. ASPIRIN 81 MG [Concomitant]
     Active Substance: ASPIRIN
  5. METHOTREXATE. [Concomitant]
     Active Substance: METHOTREXATE
  6. ALBUTEROL HFA [Concomitant]
     Active Substance: ALBUTEROL SULFATE
  7. CRESTOR [Concomitant]
     Active Substance: ROSUVASTATIN CALCIUM
  8. VITAMIN D [Concomitant]
     Active Substance: CHOLECALCIFEROL

REACTIONS (10)
  - Pyrexia [None]
  - Diarrhoea [None]
  - Dizziness [None]
  - Lip swelling [None]
  - Nausea [None]
  - Swelling face [None]
  - Rash [None]
  - Lung infiltration [None]
  - Chills [None]
  - Headache [None]

NARRATIVE: CASE EVENT DATE: 20180609
